FAERS Safety Report 10528744 (Version 1)
Quarter: 2014Q4

REPORT INFORMATION
  Report Type: Spontaneous
  Country: US (occurrence: None)
  Receive Date: 20141017
  Receipt Date: 20141017
  Transmission Date: 20150528
  Serious: No
  Sender: FDA-Public Use
  Company Number: None

PATIENT
  Age: 63 Year
  Sex: Male
  Weight: 62.6 kg

DRUGS (5)
  1. AMITRIPTYLINE [Concomitant]
     Active Substance: AMITRIPTYLINE
  2. GENERIC CYMBALTA [Suspect]
     Active Substance: DULOXETINE HYDROCHLORIDE
     Indication: PAIN
     Dosage: 1 PER DAY
     Route: 048
     Dates: start: 20140921
  3. LAMICTAL [Concomitant]
     Active Substance: LAMOTRIGINE
  4. CLONAZEPAM. [Concomitant]
     Active Substance: CLONAZEPAM
  5. GENERIC CYMBALTA [Suspect]
     Active Substance: DULOXETINE HYDROCHLORIDE
     Indication: ANXIETY
     Dosage: 1 PER DAY
     Route: 048
     Dates: start: 20140921

REACTIONS (4)
  - Pain [None]
  - Asthenia [None]
  - Pruritus generalised [None]
  - Mental disorder [None]

NARRATIVE: CASE EVENT DATE: 20140921
